FAERS Safety Report 7219238-3 (Version None)
Quarter: 2011Q1

REPORT INFORMATION
  Report Type: 
  Country: None (occurrence: None)
  Receive Date: 20110111
  Receipt Date: 20110104
  Transmission Date: 20110831
  Serious: Yes (Other)
  Sender: FDA-Public Use
  Company Number: US-PFIZER INC-2010042652

PATIENT
  Age: 82 Year
  Sex: Male
  Weight: 77 kg

DRUGS (8)
  1. ACETYLSALICYLIC ACID [Suspect]
     Indication: CARDIAC DISORDER
     Dosage: 325 MG, 1X/DAY
     Route: 048
  2. CRESTOR [Suspect]
     Indication: BLOOD CHOLESTEROL INCREASED
     Dosage: 10 MG, 1X/DAY
     Route: 048
  3. PLAVIX [Suspect]
     Indication: CARDIAC DISORDER
     Dosage: 75 MG, 1X/DAY
     Route: 048
  4. SULFADIAZINE [Suspect]
     Indication: THERMAL BURN
     Dosage: 1% CREAM, APPLIED TO BURN DAILY
     Route: 061
     Dates: start: 20091021, end: 20091201
  5. LISINOPRIL [Suspect]
     Indication: HYPERTENSION
     Dosage: 10 MG, 1X/DAY
     Route: 048
  6. METOPROLOL SUCCINATE [Suspect]
     Indication: HYPERTENSION
     Dosage: 50 MG, 1X/DAY
     Route: 048
  7. PROTONIX [Suspect]
     Indication: GASTROOESOPHAGEAL REFLUX DISEASE
     Dosage: 40 MG, 2X/DAY
     Route: 048
  8. METAMUCIL-2 [Suspect]
     Indication: CONSTIPATION
     Dosage: 2 CAPSULES DAILY
     Route: 048

REACTIONS (4)
  - HYPERSENSITIVITY [None]
  - IMPAIRED HEALING [None]
  - DRUG INEFFECTIVE [None]
  - THERMAL BURN [None]
